FAERS Safety Report 9016362 (Version 2)
Quarter: 2013Q1

REPORT INFORMATION
  Report Type: Spontaneous
  Country: US (occurrence: US)
  Receive Date: 20130116
  Receipt Date: 20130226
  Transmission Date: 20140127
  Serious: Yes (Other)
  Sender: FDA-Public Use
  Company Number: US-BAYER-2013-004537

PATIENT
  Age: 38 Year
  Sex: Female
  Weight: 61 kg

DRUGS (1)
  1. MIRENA [Suspect]
     Indication: CONTRACEPTION
     Dosage: 20 MCG/24HR, CONT
     Route: 015
     Dates: start: 20130104, end: 20130104

REACTIONS (6)
  - Device difficult to use [None]
  - Uterine perforation [Recovering/Resolving]
  - Abdominal pain [Recovering/Resolving]
  - Procedural pain [None]
  - Pyrexia [None]
  - Back pain [None]
